FAERS Safety Report 9528444 (Version 1)
Quarter: 2013Q3

REPORT INFORMATION
  Report Type: Report from Study
  Country: US (occurrence: US)
  Receive Date: 20130917
  Receipt Date: 20130917
  Transmission Date: 20140515
  Serious: No
  Sender: FDA-Public Use
  Company Number: US-009507513-1309USA002818

PATIENT
  Age: 70 Year
  Sex: Male

DRUGS (6)
  1. BOCEPREVIR [Suspect]
     Indication: CHRONIC HEPATITIS C
     Dosage: 12 WEEK INITIAL LENGHT OF TREATMENT
     Route: 048
     Dates: start: 20130809
  2. RIBAVIRIN [Suspect]
     Indication: CHRONIC HEPATITIS C
     Dosage: 1000 MG DAILY, DIVIDED DOSES
     Route: 048
     Dates: start: 20130712
  3. RIBAVIRIN [Suspect]
     Dosage: 600 MG/DAY
     Route: 048
     Dates: start: 20130808, end: 20130826
  4. RIBAVIRIN [Suspect]
     Dosage: UNK, QD
     Route: 048
     Dates: start: 20130827
  5. PEGASYS [Suspect]
     Indication: CHRONIC HEPATITIS C
     Dosage: 180 MICROGRAM, QW
     Route: 058
     Dates: start: 20130712
  6. PROCRIT [Concomitant]
     Dosage: 1 DF, QW

REACTIONS (2)
  - Diarrhoea [Unknown]
  - Blood count abnormal [Unknown]
